FAERS Safety Report 5014745-6 (Version None)
Quarter: 2006Q2

REPORT INFORMATION
  Report Type: 
  Country: None (occurrence: None)
  Receive Date: 20060531
  Receipt Date: 20060522
  Transmission Date: 20061013
  Serious: Yes (Other)
  Sender: FDA-Public Use
  Company Number: NL-GLAXOSMITHKLINE-B0425743A

PATIENT
  Age: 50 Year
  Sex: Male

DRUGS (2)
  1. ROSIGLITAZONE MALEATE [Suspect]
     Indication: DIABETES MELLITUS NON-INSULIN-DEPENDENT
     Dosage: 4MG UNKNOWN
     Route: 065
     Dates: start: 20030601
  2. METFORMIN [Concomitant]
     Route: 065
     Dates: start: 20030101

REACTIONS (1)
  - CARDIAC ARREST [None]
